FAERS Safety Report 18097452 (Version 1)
Quarter: 2020Q3

REPORT INFORMATION
  Report Type: Spontaneous
  Country: US (occurrence: US)
  Receive Date: 20200730
  Receipt Date: 20200730
  Transmission Date: 20201103
  Serious: Yes (Hospitalization, Other)
  Sender: FDA-Public Use
  Company Number: US-AUROBINDO-AUR-APL-2020-036652

PATIENT
  Age: 88 Year
  Sex: Female

DRUGS (3)
  1. MEROPENEM FOR INJECTION USP [Suspect]
     Active Substance: MEROPENEM
     Indication: HEPATOBILIARY INFECTION
     Dosage: UNK
     Route: 042
  2. VANCOMYCIN [Concomitant]
     Active Substance: VANCOMYCIN
     Indication: PRODUCT USED FOR UNKNOWN INDICATION
     Dosage: UNK (ONE DOSE)
     Route: 042
  3. PIPERACILLIN AND TAZOBACTAM [Concomitant]
     Active Substance: PIPERACILLIN SODIUM\TAZOBACTAM SODIUM
     Indication: PRODUCT USED FOR UNKNOWN INDICATION
     Dosage: UNK (2 DOSES)
     Route: 065

REACTIONS (1)
  - Drug ineffective [Unknown]
